FAERS Safety Report 4957792-2 (Version None)
Quarter: 2006Q1

REPORT INFORMATION
  Report Type: 
  Country: None (occurrence: None)
  Receive Date: 20060330
  Receipt Date: 20060310
  Transmission Date: 20060701
  Serious: Yes (Hospitalization)
  Sender: FDA-Public Use
  Company Number: US-BRISTOL-MYERS SQUIBB COMPANY-13311022

PATIENT
  Age: 30 Year
  Sex: Female

DRUGS (4)
  1. CETUXIMAB [Suspect]
     Indication: OESOPHAGEAL CARCINOMA
     Dosage: 400 MG/M2 DAY 1, 250 MG/M2 DAYS 8,22,29,36, DAY 15 HELD. TOTAL DOSE=2116 MG.
     Dates: start: 20060131, end: 20060131
  2. CARBOPLATIN [Suspect]
     Indication: OESOPHAGEAL CARCINOMA
     Dosage: GIVEN AT AUC 2 WEEKLY X 6 DOSES; REC'D 5 OF 6 DOSES. TOTAL DOSE=1138 MG.
     Dates: start: 20060131, end: 20060131
  3. PACLITAXEL [Suspect]
     Indication: OESOPHAGEAL CARCINOMA
     Dosage: GIVEN WEEKLY X 6 DOSES; RECEIVED 5 OF 6 DOSES. TOTAL DOSE = 380 MG.
     Dates: start: 20060131, end: 20060131
  4. RADIATION THERAPY [Suspect]
     Indication: OESOPHAGEAL CARCINOMA
     Dosage: 1.8 GY X 28 FX; TOTAL DOSE 50.4 GY. GIVEN 19-DEC-2005 TO 31-JAN-2006.
     Dates: start: 20060131, end: 20060131

REACTIONS (2)
  - CENTRAL LINE INFECTION [None]
  - PYREXIA [None]
